FAERS Safety Report 20024229 (Version 1)
Quarter: 2021Q4

REPORT INFORMATION
  Report Type: Spontaneous
  Country: JP (occurrence: JP)
  Receive Date: 20211102
  Receipt Date: 20211102
  Transmission Date: 20220303
  Serious: Yes (Other)
  Sender: FDA-Public Use
  Company Number: JP-KYOWAKIRIN-2021AKK018087

PATIENT
  Age: 76 Year
  Sex: Female

DRUGS (3)
  1. PEGFILGRASTIM [Suspect]
     Active Substance: PEGFILGRASTIM
     Indication: Neutrophil count decreased
     Dosage: UNK
     Route: 058
  2. PACLITAXEL [Concomitant]
     Active Substance: PACLITAXEL
     Indication: Ovarian cancer stage III
     Dosage: UNK, 4 CYCLES
     Route: 041
  3. CARBOPLATIN [Concomitant]
     Active Substance: CARBOPLATIN
     Indication: Ovarian cancer stage III
     Dosage: UNK, 4 CYCLES
     Route: 041

REACTIONS (3)
  - Takayasu^s arteritis [Recovering/Resolving]
  - Therapeutic procedure [Unknown]
  - Off label use [Unknown]
